FAERS Safety Report 9719714 (Version 2)
Quarter: 2014Q1

REPORT INFORMATION
  Report Type: Spontaneous
  Country: US (occurrence: US)
  Receive Date: 20131128
  Receipt Date: 20140203
  Transmission Date: 20141002
  Serious: No
  Sender: FDA-Public Use
  Company Number: US-009507513-1311USA012061

PATIENT
  Sex: Female

DRUGS (2)
  1. ASMANEX TWISTHALER [Suspect]
     Dosage: 1 PUFF DAILY TO START
     Route: 055
     Dates: start: 20120820
  2. ASMANEX TWISTHALER [Suspect]
     Dosage: INCREASE TO 2 PUFFS TWICE DAILY
     Route: 055

REACTIONS (3)
  - Exposure to mould [Unknown]
  - Drug dose omission [Unknown]
  - Product quality issue [Unknown]
